FAERS Safety Report 4394337-2 (Version None)
Quarter: 2004Q3

REPORT INFORMATION
  Report Type: 
  Country: None (occurrence: None)
  Receive Date: 20040706
  Receipt Date: 20040625
  Transmission Date: 20050211
  Serious: Yes (Death, Life-Threatening, Other)
  Sender: FDA-Public Use
  Company Number: 200417878BWH

PATIENT
  Age: 76 Year
  Sex: Male

DRUGS (6)
  1. TRASYLOL [Suspect]
     Indication: AORTIC STENOSIS
     Dosage: 600 ML, TOTAL DAILY, INTRAVENOUS
     Route: 042
     Dates: start: 20040507
  2. TRASYLOL [Suspect]
     Indication: CORONARY ARTERY DISEASE
     Dosage: 600 ML, TOTAL DAILY, INTRAVENOUS
     Route: 042
     Dates: start: 20040507
  3. NITROGLYCERIN [Concomitant]
  4. ANESTHESIA AGENTS [Concomitant]
  5. VASOPRESSORS [Concomitant]
  6. PLAVIX [Concomitant]

REACTIONS (5)
  - ACIDOSIS [None]
  - HYPOPERFUSION [None]
  - POST PROCEDURAL COMPLICATION [None]
  - RENAL FAILURE [None]
  - SHOCK [None]
